FAERS Safety Report 16624613 (Version 1)
Quarter: 2019Q3

REPORT INFORMATION
  Report Type: Spontaneous
  Country: US (occurrence: US)
  Receive Date: 20190723
  Receipt Date: 20190723
  Transmission Date: 20191004
  Serious: Yes (Other)
  Sender: FDA-Public Use
  Company Number: None

PATIENT
  Age: 38 Year
  Sex: Female
  Weight: 66.15 kg

DRUGS (1)
  1. CVS HEALTH LUBRICANT EYE DROPS MULTI-SYMPTON EYE RELIEF RELEAVES REDNE [Suspect]
     Active Substance: GLYCERIN\HYPROMELLOSES\POLYETHYLENE GLYCOL 400\TETRAHYDROZOLINE HYDROCHLORIDE\ZINC SULFATE
     Indication: EYE IRRITATION
     Route: 047
     Dates: start: 20190623, end: 20190627

REACTIONS (2)
  - Recalled product administered [None]
  - Ulcerative keratitis [None]

NARRATIVE: CASE EVENT DATE: 20190624
